FAERS Safety Report 6228066-7 (Version None)
Quarter: 2009Q2

REPORT INFORMATION
  Report Type: 
  Country: None (occurrence: None)
  Receive Date: 20090612
  Receipt Date: 20090609
  Transmission Date: 20091009
  Serious: Yes (Hospitalization)
  Sender: FDA-Public Use
  Company Number: US-MERCK-0906USA01692

PATIENT
  Age: 60 Year
  Sex: Female

DRUGS (3)
  1. JANUMET [Suspect]
     Route: 048
     Dates: start: 20080101, end: 20090101
  2. JANUMET [Suspect]
     Route: 048
     Dates: start: 20090201, end: 20090101
  3. JANUVIA [Concomitant]
     Route: 048
     Dates: start: 20090101, end: 20090201

REACTIONS (2)
  - DERMATITIS BULLOUS [None]
  - DRUG HYPERSENSITIVITY [None]
